FAERS Safety Report 26127077 (Version 1)
Quarter: 2025Q4

REPORT INFORMATION
  Report Type: Spontaneous
  Country: EU (occurrence: EU)
  Receive Date: 20251205
  Receipt Date: 20251205
  Transmission Date: 20260118
  Serious: Yes (Other)
  Sender: MYLAN
  Company Number: None

PATIENT
  Age: 72 Year
  Sex: Female

DRUGS (4)
  1. ATORVASTATIN [Suspect]
     Active Substance: ATORVASTATIN
     Indication: Dyslipidaemia
     Dosage: 20 MILLIGRAM, QD FILM-COATED TABLET (1 TABLET ONCE DAILY TAKEN FOR ONLY 1 WEEK)
     Dates: start: 201703, end: 201703
  2. ATORVASTATIN [Suspect]
     Active Substance: ATORVASTATIN
     Dosage: 20 MILLIGRAM, QD FILM-COATED TABLET (1 TABLET ONCE DAILY TAKEN FOR ONLY 1 WEEK)
     Route: 048
     Dates: start: 201703, end: 201703
  3. ATORVASTATIN [Suspect]
     Active Substance: ATORVASTATIN
     Dosage: 20 MILLIGRAM, QD FILM-COATED TABLET (1 TABLET ONCE DAILY TAKEN FOR ONLY 1 WEEK)
     Route: 048
     Dates: start: 201703, end: 201703
  4. ATORVASTATIN [Suspect]
     Active Substance: ATORVASTATIN
     Dosage: 20 MILLIGRAM, QD FILM-COATED TABLET (1 TABLET ONCE DAILY TAKEN FOR ONLY 1 WEEK)
     Dates: start: 201703, end: 201703

REACTIONS (2)
  - Loss of consciousness [Recovered/Resolved]
  - Myalgia [Recovered/Resolved]

NARRATIVE: CASE EVENT DATE: 20170301
